FAERS Safety Report 13322239 (Version 2)
Quarter: 2017Q1

REPORT INFORMATION
  Report Type: Spontaneous
  Country: US (occurrence: US)
  Receive Date: 20170309
  Receipt Date: 20170314
  Transmission Date: 20170428
  Serious: No
  Sender: FDA-Public Use
  Company Number: US-PFIZER INC-2016582531

PATIENT
  Age: 63 Year
  Sex: Female
  Weight: 50.34 kg

DRUGS (7)
  1. LYRICA [Suspect]
     Active Substance: PREGABALIN
     Indication: PAIN
     Dosage: 50 MG, ALTERNATE DAY (TAKE 1 PO BD EVERY OTHER DAY AND ON THE OPPOSITE DAYS)
     Route: 048
     Dates: start: 20160119
  2. TRAMADOL HCL [Concomitant]
     Active Substance: TRAMADOL HYDROCHLORIDE
     Dosage: 50 MG, AS NEEDED (EVERY 6 HOURS)
     Route: 048
     Dates: start: 20150414
  3. PROPRANOLOL HCL [Concomitant]
     Active Substance: PROPRANOLOL HYDROCHLORIDE
     Dosage: 10 MG, 3X/DAY
     Route: 048
     Dates: start: 20140314
  4. LYRICA [Suspect]
     Active Substance: PREGABALIN
     Dosage: 50 MG, 2X/DAY
     Route: 048
     Dates: start: 201603, end: 20170130
  5. AZITHROMYCIN ANHYDROUS. [Concomitant]
     Active Substance: AZITHROMYCIN ANHYDROUS
     Dosage: 250 MG, (TAKE 2 TABLETS TODAY THEN ONE DAY UNTIL DONE)
     Route: 048
     Dates: start: 20161118
  6. TRAZODONE HYDROCHLORIDE. [Concomitant]
     Active Substance: TRAZODONE HYDROCHLORIDE
     Dosage: 100 MG, 2X/DAY
     Route: 048
     Dates: start: 20121113
  7. TRAMADOL HCL [Concomitant]
     Active Substance: TRAMADOL HYDROCHLORIDE
     Indication: PAIN
     Dosage: 50 MG, AS NEEDED (1 TABLET EVERY 6 HOURS)
     Route: 048
     Dates: start: 20140813

REACTIONS (3)
  - Prescribed underdose [Unknown]
  - Off label use [Unknown]
  - Drug ineffective [Unknown]
